FAERS Safety Report 8246360-5 (Version None)
Quarter: 2012Q1

REPORT INFORMATION
  Report Type: 
  Country: None (occurrence: None)
  Receive Date: 20120329
  Receipt Date: 20120329
  Transmission Date: 20120608
  Serious: Yes (Hospitalization)
  Sender: FDA-Public Use
  Company Number: None

PATIENT
  Sex: Female
  Weight: 111 kg

DRUGS (2)
  1. EVEROLIMUS (AFINITOR, RAD-001) [Suspect]
     Dosage: 130 MG
     Dates: end: 20120325
  2. SANDOSTATIN [Suspect]
     Dosage: 20 MG
     Dates: end: 20120228

REACTIONS (3)
  - LACERATION [None]
  - LOSS OF CONSCIOUSNESS [None]
  - AMNESIA [None]
